FAERS Safety Report 6423615-8 (Version None)
Quarter: 2009Q4

REPORT INFORMATION
  Report Type: 
  Country: None (occurrence: None)
  Receive Date: 20091102
  Receipt Date: 20091026
  Transmission Date: 20100525
  Serious: Yes (Hospitalization, Other)
  Sender: FDA-Public Use
  Company Number: US-PFIZER INC-2008060803

PATIENT
  Sex: Female
  Weight: 61.363 kg

DRUGS (1)
  1. DETROL LA [Suspect]
     Indication: HYPERTONIC BLADDER
     Route: 048

REACTIONS (4)
  - DRUG INEFFECTIVE [None]
  - HIP FRACTURE [None]
  - MEDICATION ERROR [None]
  - URINARY INCONTINENCE [None]
